FAERS Safety Report 7653554-6 (Version None)
Quarter: 2011Q3

REPORT INFORMATION
  Report Type: 
  Country: None (occurrence: None)
  Receive Date: 20110803
  Receipt Date: 20110722
  Transmission Date: 20111222
  Serious: Yes (Hospitalization)
  Sender: FDA-Public Use
  Company Number: US-US-EMD SERONO, INC.-7055363

PATIENT
  Sex: Male
  Weight: 96 kg

DRUGS (3)
  1. RANITIDINE [Concomitant]
     Indication: ABDOMINAL DISCOMFORT
     Dates: start: 20110420, end: 20110501
  2. REBIF [Suspect]
     Indication: MULTIPLE SCLEROSIS
     Route: 058
     Dates: start: 20110217, end: 20110402
  3. REBIF [Suspect]
     Route: 058
     Dates: start: 20110415

REACTIONS (1)
  - MULTIPLE SCLEROSIS RELAPSE [None]
